FAERS Safety Report 9121084 (Version 1)
Quarter: 2013Q1

REPORT INFORMATION
  Report Type: Spontaneous
  Country: US (occurrence: US)
  Receive Date: 20130226
  Receipt Date: 20130226
  Transmission Date: 20140127
  Serious: Yes (Other)
  Sender: FDA-Public Use
  Company Number: US-PFIZER INC-2013068023

PATIENT
  Age: 43 Year
  Sex: Female

DRUGS (2)
  1. CHANTIX [Suspect]
     Indication: SMOKING CESSATION THERAPY
     Dosage: STARTER PACK
     Route: 048
     Dates: start: 2010, end: 201102
  2. CHANTIX [Suspect]
     Dosage: CONTINUING MONTH PACK ONE MG TABLET
     Route: 048
     Dates: start: 20110211

REACTIONS (3)
  - Depression [Unknown]
  - Alopecia [Unknown]
  - Skin irritation [Unknown]
